FAERS Safety Report 8504210-3 (Version None)
Quarter: 2012Q3

REPORT INFORMATION
  Report Type: 
  Country: None (occurrence: None)
  Receive Date: 20120711
  Receipt Date: 20120706
  Transmission Date: 20120928
  Serious: No
  Sender: FDA-Public Use
  Company Number: US-TEVA-347347USA

PATIENT
  Sex: Female

DRUGS (1)
  1. ENJUVIA [Suspect]
     Indication: MENOPAUSE
     Route: 048
     Dates: start: 20120706

REACTIONS (7)
  - ABDOMINAL PAIN UPPER [None]
  - DIZZINESS [None]
  - COGNITIVE DISORDER [None]
  - DYSPNOEA [None]
  - PRESYNCOPE [None]
  - HEART RATE INCREASED [None]
  - ABDOMINAL DISTENSION [None]
